FAERS Safety Report 7242108-1 (Version None)
Quarter: 2011Q1

REPORT INFORMATION
  Report Type: 
  Country: None (occurrence: None)
  Receive Date: 20110124
  Receipt Date: 20110121
  Transmission Date: 20110831
  Serious: Yes (Death)
  Sender: FDA-Public Use
  Company Number: JP-PFIZER INC-2011015803

PATIENT
  Sex: Male

DRUGS (2)
  1. HALCION [Suspect]
     Indication: INSOMNIA
  2. NITRAZEPAM [Suspect]

REACTIONS (3)
  - CARDIO-RESPIRATORY ARREST [None]
  - PULMONARY OEDEMA [None]
  - DRUG WITHDRAWAL SYNDROME [None]
